FAERS Safety Report 25237631 (Version 1)
Quarter: 2025Q2

REPORT INFORMATION
  Report Type: Spontaneous
  Country: TR (occurrence: TR)
  Receive Date: 20250425
  Receipt Date: 20250425
  Transmission Date: 20250716
  Serious: Yes (Life-Threatening, Hospitalization, Other)
  Sender: SANDOZ
  Company Number: TR-SANDOZ-SDZ2025TR025814

PATIENT
  Age: 74 Year
  Sex: Female

DRUGS (8)
  1. GLICLAZIDE [Suspect]
     Active Substance: GLICLAZIDE
     Indication: Hypertension
     Route: 065
  2. GLICLAZIDE [Suspect]
     Active Substance: GLICLAZIDE
     Indication: Diabetes mellitus
  3. HYDROCHLOROTHIAZIDE [Suspect]
     Active Substance: HYDROCHLOROTHIAZIDE
     Indication: Diabetes mellitus
     Route: 065
  4. HYDROCHLOROTHIAZIDE [Suspect]
     Active Substance: HYDROCHLOROTHIAZIDE
     Indication: Hypertension
  5. METFORMIN [Suspect]
     Active Substance: METFORMIN HYDROCHLORIDE
     Indication: Type 2 diabetes mellitus
     Route: 065
  6. METFORMIN [Suspect]
     Active Substance: METFORMIN HYDROCHLORIDE
     Indication: Hypertension
  7. OLMESARTAN [Suspect]
     Active Substance: OLMESARTAN
     Indication: Diabetes mellitus
     Route: 065
  8. OLMESARTAN [Suspect]
     Active Substance: OLMESARTAN
     Indication: Hypertension

REACTIONS (3)
  - Toxicity to various agents [Unknown]
  - Lactic acidosis [Unknown]
  - Acute kidney injury [Unknown]
